FAERS Safety Report 26065035 (Version 1)
Quarter: 2025Q4

REPORT INFORMATION
  Report Type: Spontaneous
  Country: CN (occurrence: CN)
  Receive Date: 20251119
  Receipt Date: 20251119
  Transmission Date: 20260118
  Serious: Yes (Other)
  Sender: PFIZER
  Company Number: CN-PFIZER INC-PV202500134148

PATIENT
  Age: 56 Year
  Sex: Male
  Weight: 65 kg

DRUGS (1)
  1. XYNTHA [Suspect]
     Active Substance: MOROCTOCOG ALFA
     Indication: Factor VIII deficiency
     Dosage: 2000IU EACH TIME, ONCE A DAY
     Route: 040

REACTIONS (8)
  - Gait inability [Unknown]
  - Joint adhesion [Unknown]
  - Haemarthrosis [Unknown]
  - Post procedural haemorrhage [Unknown]
  - Ecchymosis [Unknown]
  - Haemarthrosis [Unknown]
  - Arthralgia [Unknown]
  - Mobility decreased [Unknown]

NARRATIVE: CASE EVENT DATE: 20250801
